FAERS Safety Report 4546813-7 (Version None)
Quarter: 2005Q1

REPORT INFORMATION
  Report Type: 
  Country: None (occurrence: None)
  Receive Date: 20050105
  Receipt Date: 20041228
  Transmission Date: 20050727
  Serious: Yes (Hospitalization)
  Sender: FDA-Public Use
  Company Number: 2004119830

PATIENT
  Age: 86 Year
  Sex: Male

DRUGS (7)
  1. FRAGMIN [Suspect]
     Indication: MYOCARDIAL INFARCTION
     Dosage: 18000 I.U. (9000 I.U., TWICE DAILY), SUBCUTANEOUS
     Route: 058
     Dates: start: 20031003, end: 20031005
  2. ASPIRIN [Suspect]
     Indication: ILL-DEFINED DISORDER
  3. METOPROLOL SUCCINATE [Concomitant]
  4. NITROGLYCERIN [Concomitant]
  5. LATANOPROST [Concomitant]
  6. DEXAMETHASONE [Concomitant]
  7. ISOSORIBIDE MONONITRATE (ISOSORBIDE MONONITRATE) [Concomitant]

REACTIONS (1)
  - HAEMATURIA [None]
